FAERS Safety Report 6272397-1 (Version None)
Quarter: 2009Q3

REPORT INFORMATION
  Report Type: 
  Country: None (occurrence: None)
  Receive Date: 20090717
  Receipt Date: 20090708
  Transmission Date: 20100115
  Serious: Yes (Death, Life-Threatening)
  Sender: FDA-Public Use
  Company Number: FR-MERCK-0907FRA00039

PATIENT
  Age: 70 Year
  Sex: Female

DRUGS (4)
  1. CILASTATIN SODIUM AND IMIPENEM [Concomitant]
     Indication: SEPTIC SHOCK
     Route: 041
     Dates: start: 20081216, end: 20081226
  2. VORICONAZOLE [Suspect]
     Indication: SEPSIS
     Route: 042
     Dates: start: 20081214, end: 20081224
  3. CANCIDAS [Suspect]
     Indication: SEPSIS
     Route: 042
     Dates: start: 20081216, end: 20081226
  4. VORICONAZOLE [Suspect]
     Route: 048
     Dates: start: 20081224, end: 20081228

REACTIONS (2)
  - DRUG INTERACTION [None]
  - HEPATIC FAILURE [None]
